FAERS Safety Report 23232674 (Version 1)
Quarter: 2023Q4

REPORT INFORMATION
  Report Type: Spontaneous
  Country: AU (occurrence: None)
  Receive Date: 20231128
  Receipt Date: 20231128
  Transmission Date: 20240110
  Serious: Yes (Life-Threatening, Other)
  Sender: FDA-Public Use
  Company Number: AU-ROCHE-3462746

PATIENT
  Age: 2 Year
  Sex: Female

DRUGS (5)
  1. PREDNISOLONE [Suspect]
     Active Substance: PREDNISOLONE
     Indication: Still^s disease
     Route: 048
  2. METHYLPREDNISOLONE [Suspect]
     Active Substance: METHYLPREDNISOLONE
     Indication: Still^s disease
     Route: 042
  3. CYCLOSPORINE [Suspect]
     Active Substance: CYCLOSPORINE
     Indication: Still^s disease
     Route: 065
  4. TOCILIZUMAB [Suspect]
     Active Substance: TOCILIZUMAB
     Indication: Still^s disease
     Route: 065
  5. ANAKINRA [Suspect]
     Active Substance: ANAKINRA
     Indication: Still^s disease
     Route: 065
     Dates: start: 202301

REACTIONS (9)
  - Clubbing [Unknown]
  - Condition aggravated [Unknown]
  - Drug dependence [Unknown]
  - Drug ineffective for unapproved indication [Unknown]
  - Haemophagocytic lymphohistiocytosis [Unknown]
  - Juvenile idiopathic arthritis [Unknown]
  - Liver function test abnormal [Unknown]
  - Lung disorder [Unknown]
  - Viral infection [Unknown]
